FAERS Safety Report 25817812 (Version 1)
Quarter: 2025Q3

REPORT INFORMATION
  Report Type: Spontaneous
  Country: US (occurrence: None)
  Receive Date: 20250917
  Receipt Date: 20250917
  Transmission Date: 20251021
  Serious: Yes (Other)
  Sender: FDA-CTU
  Company Number: None

PATIENT
  Age: 39 Year
  Sex: Female
  Weight: 87.75 kg

DRUGS (8)
  1. PROGESTERONE [Suspect]
     Active Substance: PROGESTERONE
     Indication: Hormone replacement therapy
     Dosage: FREQUENCY : AT BEDTIME;?
     Route: 048
     Dates: start: 20250910, end: 20250915
  2. PROGESTERONE [Suspect]
     Active Substance: PROGESTERONE
     Indication: Polycystic ovaries
  3. SERTRALINE [Concomitant]
     Active Substance: SERTRALINE HYDROCHLORIDE
  4. WELLBUTRIN XL [Concomitant]
     Active Substance: BUPROPION HYDROCHLORIDE
  5. VRAYLAR [Concomitant]
     Active Substance: CARIPRAZINE
  6. TRAZODONE [Concomitant]
     Active Substance: TRAZODONE HYDROCHLORIDE
  7. VITAMIN D NOS [Concomitant]
     Active Substance: CHOLECALCIFEROL\ERGOCALCIFEROL
  8. Iron+C [Concomitant]

REACTIONS (4)
  - Anxiety [None]
  - Insomnia [None]
  - Paranoia [None]
  - Depression [None]

NARRATIVE: CASE EVENT DATE: 20250916
